FAERS Safety Report 9484154 (Version 1)
Quarter: 2013Q3

REPORT INFORMATION
  Report Type: Spontaneous
  Country: US (occurrence: US)
  Receive Date: 20130828
  Receipt Date: 20130828
  Transmission Date: 20140515
  Serious: Yes (Hospitalization)
  Sender: FDA-Public Use
  Company Number: US-UCBSA-095953

PATIENT
  Age: 50 Year
  Sex: Male
  Weight: 109 kg

DRUGS (1)
  1. VIMPAT [Suspect]
     Indication: COMPLEX PARTIAL SEIZURES
     Route: 048
     Dates: start: 2011

REACTIONS (2)
  - Upper limb fracture [Recovering/Resolving]
  - Grand mal convulsion [Recovered/Resolved]
